FAERS Safety Report 8356547-9 (Version None)
Quarter: 2012Q2

REPORT INFORMATION
  Report Type: 
  Country: None (occurrence: None)
  Receive Date: 20120514
  Receipt Date: 20120507
  Transmission Date: 20120825
  Serious: Yes (Other)
  Sender: FDA-Public Use
  Company Number: PHHY2010JP12905

PATIENT
  Age: 6 Year
  Sex: Female

DRUGS (5)
  1. PREDNISOLONE [Concomitant]
     Dosage: 15 MG, QOD
  2. CYCLOPHOSPHAMIDE [Concomitant]
     Indication: NEPHROTIC SYNDROME
     Dosage: UNK UKN, UNK
  3. CYCLOSPORINE [Suspect]
     Indication: NEPHROTIC SYNDROME
     Dosage: UNK UKN, UNK
     Route: 048
  4. METHYLPREDNISOLONE [Concomitant]
     Indication: NEPHROTIC SYNDROME
     Dosage: UNK UKN, UNK
  5. PREDNISOLONE [Concomitant]
     Indication: NEPHROTIC SYNDROME
     Dosage: 60MG/M2/DAY

REACTIONS (8)
  - DEPRESSED LEVEL OF CONSCIOUSNESS [None]
  - RESPIRATORY DEPRESSION [None]
  - VOMITING [None]
  - DRUG INEFFECTIVE [None]
  - HEADACHE [None]
  - CONVULSION [None]
  - POSTERIOR REVERSIBLE ENCEPHALOPATHY SYNDROME [None]
  - HYPERTENSION [None]
